FAERS Safety Report 4296126-6 (Version None)
Quarter: 2004Q1

REPORT INFORMATION
  Report Type: 
  Country: None (occurrence: None)
  Receive Date: 20040217
  Receipt Date: 20030818
  Transmission Date: 20041129
  Serious: No
  Sender: FDA-Public Use
  Company Number: US-GLAXOSMITHKLINE-A0422866A

PATIENT

DRUGS (2)
  1. LAMICTAL [Suspect]
     Route: 048
  2. CARBATROL [Suspect]
     Route: 065

REACTIONS (2)
  - DRUG INTERACTION [None]
  - PARANOIA [None]
